FAERS Safety Report 7465422-3 (Version None)
Quarter: 2011Q2

REPORT INFORMATION
  Report Type: 
  Country: None (occurrence: None)
  Receive Date: 20110509
  Receipt Date: 20110504
  Transmission Date: 20111010
  Serious: Yes (Hospitalization, Other)
  Sender: FDA-Public Use
  Company Number: US-ROCHE-688041

PATIENT
  Sex: Female
  Weight: 56.7 kg

DRUGS (1)
  1. ACCUTANE [Suspect]
     Indication: ACNE
     Route: 065
     Dates: start: 19950101, end: 19960101

REACTIONS (17)
  - PELVIC ABSCESS [None]
  - IRON DEFICIENCY ANAEMIA [None]
  - INFLAMMATORY BOWEL DISEASE [None]
  - CONSTIPATION [None]
  - CROHN'S DISEASE [None]
  - ENTEROVESICAL FISTULA [None]
  - HAEMATOCHEZIA [None]
  - DIARRHOEA [None]
  - PANIC ATTACK [None]
  - ABDOMINAL PAIN [None]
  - WEIGHT DECREASED [None]
  - ANAL SKIN TAGS [None]
  - TUBO-OVARIAN ABSCESS [None]
  - FEMALE GENITAL TRACT FISTULA [None]
  - ANXIETY [None]
  - ILEAL PERFORATION [None]
  - GASTROOESOPHAGEAL REFLUX DISEASE [None]
